FAERS Safety Report 6634620-0 (Version None)
Quarter: 2010Q1

REPORT INFORMATION
  Report Type: 
  Country: None (occurrence: None)
  Receive Date: 20100315
  Receipt Date: 20100308
  Transmission Date: 20100710
  Serious: Yes (Hospitalization)
  Sender: FDA-Public Use
  Company Number: A0849776A

PATIENT
  Age: 70 Year
  Sex: Female
  Weight: 71.4 kg

DRUGS (1)
  1. AVANDIA [Suspect]
     Indication: TYPE 2 DIABETES MELLITUS
     Route: 048
     Dates: start: 20031120, end: 20061011

REACTIONS (4)
  - ARRHYTHMIA [None]
  - ASTHENIA [None]
  - CARDIAC DISORDER [None]
  - IMPAIRED DRIVING ABILITY [None]
